FAERS Safety Report 9685255 (Version 1)
Quarter: 2013Q4

REPORT INFORMATION
  Report Type: Spontaneous
  Country: GB (occurrence: GB)
  Receive Date: 20131113
  Receipt Date: 20131113
  Transmission Date: 20140711
  Serious: Yes (Other)
  Sender: FDA-Public Use
  Company Number: GB-BAYER-2013-135492

PATIENT
  Age: 21 Year
  Sex: Female
  Weight: 96.16 kg

DRUGS (5)
  1. MIRENA [Suspect]
     Indication: CONTRACEPTION
     Dosage: 20 ?G/D, CONT
     Route: 015
     Dates: start: 20101205, end: 201110
  2. IMPLANON [Suspect]
     Indication: CONTRACEPTION
     Dosage: UNK
     Route: 059
     Dates: start: 201206, end: 201303
  3. BECONASE [Concomitant]
     Indication: NASAL DISCOMFORT
     Dosage: 2 DF, BID
     Route: 045
     Dates: start: 201103, end: 20131028
  4. DIAZEPAM [Concomitant]
  5. TRAMADOL [Concomitant]

REACTIONS (6)
  - Cervicitis [Recovering/Resolving]
  - Coagulopathy [Recovering/Resolving]
  - Muscle spasms [Recovering/Resolving]
  - Menorrhagia [Recovering/Resolving]
  - Complication of device insertion [Recovering/Resolving]
  - Pregnancy on contraceptive [None]
